FAERS Safety Report 12246121 (Version 4)
Quarter: 2016Q4

REPORT INFORMATION
  Report Type: Spontaneous
  Country: JP (occurrence: JP)
  Receive Date: 20160407
  Receipt Date: 20161227
  Transmission Date: 20170207
  Serious: Yes (Hospitalization, Other)
  Sender: FDA-Public Use
  Company Number: JP-GILEAD-2016-0205132

PATIENT
  Age: 82 Year
  Sex: Female
  Weight: 68.7 kg

DRUGS (8)
  1. NEXIUM [Concomitant]
     Active Substance: ESOMEPRAZOLE MAGNESIUM
     Indication: GASTRITIS
     Dosage: 20 MG, UNK
     Dates: start: 20160318
  2. HARVONI [Suspect]
     Active Substance: LEDIPASVIR\SOFOSBUVIR
     Indication: CHRONIC HEPATITIS C
     Dosage: UNK
     Route: 048
     Dates: start: 20160319, end: 20160319
  3. ETIZOLAM [Suspect]
     Active Substance: ETIZOLAM
     Indication: NEUROSIS
     Dosage: 0.5 MG, UNK
     Route: 048
     Dates: start: 20141212
  4. TEPRENONE [Suspect]
     Active Substance: TEPRENONE
     Indication: GASTRITIS
     Dosage: 150 MG, UNK
     Route: 048
     Dates: start: 19960722
  5. URSODEOXYCHOLIC ACID [Suspect]
     Active Substance: URSODIOL
     Indication: CHRONIC HEPATITIS C
     Dosage: 600 MG, UNK
     Route: 048
     Dates: start: 19960722
  6. AMLODIPINE [Suspect]
     Active Substance: AMLODIPINE BESYLATE
     Indication: HYPERTENSION
     Dosage: 2.5 MG, UNK
     Route: 048
     Dates: start: 19960722
  7. FAMOTIDINE. [Suspect]
     Active Substance: FAMOTIDINE
     Indication: GASTRITIS
     Dosage: 40 MG, UNK
     Route: 048
     Dates: start: 19960722, end: 20160317
  8. NEOXY [Suspect]
     Active Substance: OXYBUTYNIN CHLORIDE
     Indication: PRODUCT USED FOR UNKNOWN INDICATION
     Dosage: UNK
     Route: 065

REACTIONS (2)
  - Ventricular tachycardia [Recovered/Resolved]
  - Myocardial infarction [Unknown]

NARRATIVE: CASE EVENT DATE: 20160319
